FAERS Safety Report 7024573-8 (Version None)
Quarter: 2010Q3

REPORT INFORMATION
  Report Type: 
  Country: None (occurrence: None)
  Receive Date: 20100929
  Receipt Date: 20100924
  Transmission Date: 20110219
  Serious: Yes (Other)
  Sender: FDA-Public Use
  Company Number: 2010SP046070

PATIENT
  Sex: Female

DRUGS (1)
  1. IMPLANON [Suspect]
     Indication: CONTRACEPTION
     Dates: start: 20040101, end: 20100830

REACTIONS (2)
  - DEVICE DIFFICULT TO USE [None]
  - INCORRECT DRUG ADMINISTRATION DURATION [None]
